FAERS Safety Report 8002735-0 (Version None)
Quarter: 2011Q4

REPORT INFORMATION
  Report Type: 
  Country: None (occurrence: None)
  Receive Date: 20111222
  Receipt Date: 20111209
  Transmission Date: 20120403
  Serious: Yes (Other)
  Sender: FDA-Public Use
  Company Number: SK-WATSON-2011-20459

PATIENT
  Age: 73 Year
  Sex: Male

DRUGS (2)
  1. DICLOFENAC SODIUM [Suspect]
     Indication: ANKYLOSING SPONDYLITIS
     Dosage: 1-2 X 75 MG DAILY
  2. IBUPROFEN [Suspect]
     Indication: ANKYLOSING SPONDYLITIS
     Dosage: 2-3 X 400 MG DAILY

REACTIONS (4)
  - GASTROINTESTINAL HAEMORRHAGE [None]
  - IRON DEFICIENCY ANAEMIA [None]
  - COLITIS ULCERATIVE [None]
  - GASTROINTESTINAL ULCER [None]
